FAERS Safety Report 18080988 (Version 1)
Quarter: 2020Q3

REPORT INFORMATION
  Report Type: Spontaneous
  Country: US (occurrence: US)
  Receive Date: 20200728
  Receipt Date: 20200728
  Transmission Date: 20201103
  Serious: Yes (Hospitalization)
  Sender: FDA-Public Use
  Company Number: US-BAYER-2020-149602

PATIENT
  Age: 56 Year
  Sex: Male

DRUGS (1)
  1. NUBEQA [Suspect]
     Active Substance: DAROLUTAMIDE
     Dosage: 600 MG, BID
     Route: 048
     Dates: start: 2020

REACTIONS (4)
  - Unevaluable event [None]
  - Product dose omission issue [None]
  - Nausea [None]
  - Inappropriate schedule of product administration [None]

NARRATIVE: CASE EVENT DATE: 20200710
